FAERS Safety Report 9703230 (Version 1)
Quarter: 2013Q4

REPORT INFORMATION
  Report Type: Spontaneous
  Country: GB (occurrence: GB)
  Receive Date: 20131122
  Receipt Date: 20131122
  Transmission Date: 20140711
  Serious: Yes (Hospitalization, Other)
  Sender: FDA-Public Use
  Company Number: GB-ASTRAZENECA-2013SE84097

PATIENT
  Age: 52 Year
  Sex: Male
  Weight: 70 kg

DRUGS (16)
  1. TICAGRELOR [Suspect]
     Indication: ACUTE CORONARY SYNDROME
     Route: 048
     Dates: start: 20131021, end: 20131028
  2. ASPIRIN [Concomitant]
     Dates: start: 20131019
  3. ATORVASTATIN [Concomitant]
     Dates: start: 20131019, end: 20131025
  4. BISOPROLOL [Concomitant]
     Dates: start: 20131031
  5. CLONIDINE [Concomitant]
     Dates: start: 20131031
  6. CLOPIDOGREL [Concomitant]
     Dates: start: 20131019, end: 20131021
  7. DOCUSATE [Concomitant]
     Dates: start: 20131026, end: 20131030
  8. FONDAPARINUX [Concomitant]
     Dates: start: 20131025, end: 20131028
  9. HALOPERIDOL [Concomitant]
     Dates: start: 20131024
  10. LANSOPRAZOLE [Concomitant]
     Dates: start: 20131031
  11. MORPHINE [Concomitant]
     Dates: start: 20131026, end: 20131028
  12. NICOTINE [Concomitant]
     Dates: start: 20131029
  13. PARACETAMOL [Concomitant]
     Dates: start: 20131020
  14. SANDO-K [Concomitant]
     Dates: start: 20131025
  15. SENNA [Concomitant]
     Dates: start: 20131025, end: 20131029
  16. TAZOCIN [Concomitant]
     Dates: start: 20131027, end: 20131027

REACTIONS (4)
  - Thrombosis [Unknown]
  - Tachycardia [Unknown]
  - Haemorrhage [Recovering/Resolving]
  - Post procedural haemorrhage [Recovering/Resolving]
